FAERS Safety Report 16834598 (Version 1)
Quarter: 2019Q3

REPORT INFORMATION
  Report Type: Spontaneous
  Country: FR (occurrence: FR)
  Receive Date: 20190920
  Receipt Date: 20190920
  Transmission Date: 20191005
  Serious: Yes (Hospitalization)
  Sender: FDA-Public Use
  Company Number: FR-MYLANLABS-2019M1087684

PATIENT
  Age: 46 Year
  Sex: Male
  Weight: 92 kg

DRUGS (2)
  1. CISPLATIN. [Suspect]
     Active Substance: CISPLATIN
     Indication: BRONCHIAL CARCINOMA
     Dosage: UNK (NP)
     Route: 042
     Dates: start: 201109, end: 201112
  2. ALUNBRIG [Suspect]
     Active Substance: BRIGATINIB
     Indication: BRONCHIAL CARCINOMA
     Dosage: 180 MILLIGRAM, QD
     Route: 048
     Dates: start: 20181109

REACTIONS (1)
  - Hypertension [Not Recovered/Not Resolved]

NARRATIVE: CASE EVENT DATE: 20190313
